FAERS Safety Report 7247515-9 (Version None)
Quarter: 2011Q1

REPORT INFORMATION
  Report Type: 
  Country: None (occurrence: None)
  Receive Date: 20110127
  Receipt Date: 20101115
  Transmission Date: 20110831
  Serious: No
  Sender: FDA-Public Use
  Company Number: US-MYLANLABS-2010S1018740

PATIENT
  Age: 57 Year
  Sex: Female
  Weight: 59.88 kg

DRUGS (3)
  1. CALCIUM [Concomitant]
  2. DIVALPROEX SODIUM EXTENDED RELEASE [Suspect]
     Indication: CONVULSION
     Route: 048
     Dates: start: 20100720, end: 20100901
  3. LEVOXYL [Concomitant]
     Indication: HYPOTHYROIDISM

REACTIONS (2)
  - SOMNOLENCE [None]
  - DRUG EFFECT INCREASED [None]
